FAERS Safety Report 11414251 (Version 1)
Quarter: 2015Q3

REPORT INFORMATION
  Report Type: Spontaneous
  Country: US (occurrence: US)
  Receive Date: 20150824
  Receipt Date: 20150824
  Transmission Date: 20151125
  Serious: No
  Sender: FDA-Public Use
  Company Number: US-BAUSCH-BL-2014-005532

PATIENT
  Sex: Female

DRUGS (1)
  1. CROMOLYN SODIUM NASAL SOLUTION USP [Suspect]
     Active Substance: CROMOLYN SODIUM
     Indication: SEASONAL ALLERGY
     Dosage: INSTILL EVERY THREE TO FOUR HOURS
     Route: 045

REACTIONS (2)
  - Asthenia [Unknown]
  - Hunger [Unknown]
